FAERS Safety Report 8459558-8 (Version None)
Quarter: 2012Q2

REPORT INFORMATION
  Report Type: 
  Country: None (occurrence: None)
  Receive Date: 20120622
  Receipt Date: 20120613
  Transmission Date: 20120825
  Serious: Yes (Other)
  Sender: FDA-Public Use
  Company Number: GB-JNJFOC-20120207599

PATIENT
  Age: 54 Year
  Sex: Female
  Weight: 68.95 kg

DRUGS (5)
  1. DEXAMETHASONE [Concomitant]
     Indication: PRODUCT USED FOR UNKNOWN INDICATION
     Route: 065
     Dates: start: 20111118, end: 20111128
  2. SUMATRIPTAN [Concomitant]
     Indication: PRODUCT USED FOR UNKNOWN INDICATION
     Route: 065
     Dates: start: 20111219, end: 20111225
  3. SUMATRIPTAN [Concomitant]
     Route: 065
     Dates: start: 20120109, end: 20120115
  4. TOPIRAMATE [Suspect]
     Indication: PRODUCT USED FOR UNKNOWN INDICATION
     Route: 048
     Dates: start: 20120112, end: 20120206
  5. SUMATRIPTAN [Concomitant]
     Route: 065
     Dates: start: 20111130, end: 20111206

REACTIONS (5)
  - COGNITIVE DISORDER [None]
  - SLOW SPEECH [None]
  - TEARFULNESS [None]
  - DYSPHEMIA [None]
  - AFFECT LABILITY [None]
